FAERS Safety Report 22255722 (Version 1)
Quarter: 2023Q2

REPORT INFORMATION
  Report Type: Spontaneous
  Country: US (occurrence: None)
  Receive Date: 20230425
  Receipt Date: 20230425
  Transmission Date: 20230722
  Serious: Yes (Hospitalization)
  Sender: FDA-Public Use
  Company Number: None

PATIENT
  Age: 77 Year
  Sex: Male

DRUGS (18)
  1. ADEMPAS [Suspect]
     Active Substance: RIOCIGUAT
     Indication: Pulmonary hypertension
     Dosage: FREQUENCY : TWICE A DAY;?
     Route: 048
     Dates: start: 20190213
  2. MONTELUKAST [Concomitant]
  3. FUROSEMIDE [Concomitant]
  4. WARFARIN [Concomitant]
  5. BISOPROLOL [Concomitant]
     Active Substance: BISOPROLOL
  6. MEXILETINE [Concomitant]
  7. ESCITALOPRAM [Concomitant]
  8. HUMLIN NPH [Concomitant]
  9. ATORVASTATIN [Concomitant]
  10. INSULIN LISPRO [Concomitant]
  11. FOSAMAX [Concomitant]
  12. PLAVIX [Concomitant]
  13. WIXELA INHUB [Concomitant]
  14. VITAMIN D3 [Concomitant]
  15. FERROUS SULFATE [Concomitant]
  16. FLONASE [Concomitant]
  17. IPRATROPIUM NASAL SPRAY [Concomitant]
  18. PANTOPRAZOLE [Concomitant]
     Active Substance: PANTOPRAZOLE

REACTIONS (3)
  - Asthma [None]
  - Cardiac failure congestive [None]
  - Chronic obstructive pulmonary disease [None]

NARRATIVE: CASE EVENT DATE: 20230328
